FAERS Safety Report 23817079 (Version 1)
Quarter: 2024Q2

REPORT INFORMATION
  Report Type: Other
  Country: CA (occurrence: CA)
  Receive Date: 20240504
  Receipt Date: 20240504
  Transmission Date: 20240715
  Serious: Yes (Hospitalization)
  Sender: FDA-Public Use
  Company Number: CA-B.Braun Medical Inc.-2156486

PATIENT
  Age: 70 Year
  Sex: Female

DRUGS (6)
  1. CEFTRIAXONE SODIUM [Suspect]
     Active Substance: CEFTRIAXONE SODIUM
     Indication: Meningitis
  2. AMPICILLIN [Suspect]
     Active Substance: AMPICILLIN
  3. MEROPENEM [Concomitant]
     Active Substance: MEROPENEM
  4. DEXAMETHASONE [Suspect]
     Active Substance: DEXAMETHASONE
  5. ACYCLOVIR [Suspect]
     Active Substance: ACYCLOVIR
  6. VANCOMYCIN [Suspect]
     Active Substance: VANCOMYCIN

REACTIONS (2)
  - Drug ineffective for unapproved indication [Unknown]
  - Seizure [Unknown]
